FAERS Safety Report 26062964 (Version 1)
Quarter: 2025Q4

REPORT INFORMATION
  Report Type: Spontaneous
  Country: US (occurrence: US)
  Receive Date: 20251119
  Receipt Date: 20251119
  Transmission Date: 20260117
  Serious: Yes (Hospitalization)
  Sender: DR REDDYS
  Company Number: None

PATIENT
  Age: 34 Year
  Sex: Male

DRUGS (3)
  1. VALPROATE [Suspect]
     Active Substance: VALPROIC ACID
     Indication: Product used for unknown indication
     Dosage: INTENTIONALLY OVERDOSING ON AN UNKNOWN AMOUNT OF VALPROATE
  2. QUETIAPINE [Concomitant]
     Active Substance: QUETIAPINE
     Indication: Product used for unknown indication
     Dosage: 200 MG EVERY NIGHT AT BEDTIME
  3. BENZTROPINE [Concomitant]
     Active Substance: BENZTROPINE
     Indication: Product used for unknown indication
     Dosage: BY MOUTH
     Route: 050

REACTIONS (5)
  - Mental disorder [Unknown]
  - Vomiting [Unknown]
  - Diarrhoea [Unknown]
  - Intentional overdose [Unknown]
  - Suicide attempt [Unknown]
